FAERS Safety Report 9973744 (Version 2)
Quarter: 2015Q3

REPORT INFORMATION
  Report Type: Spontaneous
  Country: US (occurrence: US)
  Receive Date: 20140306
  Receipt Date: 20150731
  Transmission Date: 20151125
  Serious: No
  Sender: FDA-Public Use
  Company Number: US-GILEAD-2012-0058258

PATIENT
  Sex: Female

DRUGS (2)
  1. VIREAD [Suspect]
     Active Substance: TENOFOVIR DISOPROXIL FUMARATE
     Indication: HEPATITIS B
  2. VIREAD [Suspect]
     Active Substance: TENOFOVIR DISOPROXIL FUMARATE
     Indication: HIV INFECTION

REACTIONS (8)
  - Abdominal pain upper [Unknown]
  - Back pain [Unknown]
  - Headache [Unknown]
  - Skin disorder [Unknown]
  - Insomnia [Unknown]
  - Fatigue [Unknown]
  - Dizziness [Unknown]
  - Unevaluable event [None]
